FAERS Safety Report 12109932 (Version 1)
Quarter: 2016Q1

REPORT INFORMATION
  Report Type: Spontaneous
  Country: US (occurrence: US)
  Receive Date: 20160224
  Receipt Date: 20160224
  Transmission Date: 20160526
  Serious: Yes (Other)
  Sender: FDA-Public Use
  Company Number: US-PFIZER INC-2016100668

PATIENT
  Age: 67 Year
  Sex: Female

DRUGS (3)
  1. FLECTOR [Suspect]
     Active Substance: DICLOFENAC EPOLAMINE
  2. NAPROSYN [Suspect]
     Active Substance: NAPROXEN
  3. CELEBREX [Suspect]
     Active Substance: CELECOXIB

REACTIONS (2)
  - Abdominal discomfort [Unknown]
  - Crohn^s disease [Unknown]
